FAERS Safety Report 14323474 (Version 2)
Quarter: 2018Q1

REPORT INFORMATION
  Report Type: Report from Study
  Country: None (occurrence: US)
  Receive Date: 20171226
  Receipt Date: 20180226
  Transmission Date: 20180509
  Serious: Yes (Other)
  Sender: FDA-Public Use
  Company Number: US-ABBVIE-17K-163-2203506-00

PATIENT
  Age: 56 Year
  Sex: Female

DRUGS (2)
  1. HUMIRA [Suspect]
     Active Substance: ADALIMUMAB
     Indication: CROHN^S DISEASE
     Route: 058
  2. HUMIRA [Suspect]
     Active Substance: ADALIMUMAB
     Route: 058

REACTIONS (18)
  - Peripheral coldness [Unknown]
  - Nodule [Unknown]
  - Hypometabolism [Unknown]
  - Frequent bowel movements [Unknown]
  - Gastrointestinal pain [Unknown]
  - Joint swelling [Unknown]
  - Hypoaesthesia [Unknown]
  - Peripheral swelling [Unknown]
  - Foot deformity [Unknown]
  - Poor peripheral circulation [Unknown]
  - Drug ineffective [Unknown]
  - Intervertebral disc protrusion [Not Recovered/Not Resolved]
  - Neoplasm swelling [Not Recovered/Not Resolved]
  - Migraine [Unknown]
  - Headache [Unknown]
  - Neoplasm [Unknown]
  - Intervertebral disc protrusion [Not Recovered/Not Resolved]
  - Alopecia [Unknown]

NARRATIVE: CASE EVENT DATE: 2015
